FAERS Safety Report 15217016 (Version 1)
Quarter: 2018Q3

REPORT INFORMATION
  Report Type: Spontaneous
  Country: CZ (occurrence: CZ)
  Receive Date: 20180730
  Receipt Date: 20180730
  Transmission Date: 20181010
  Serious: Yes (Hospitalization)
  Sender: FDA-Public Use
  Company Number: PHHY2018CZ053461

PATIENT
  Age: 65 Year
  Sex: Male

DRUGS (1)
  1. RISPERIDONE. [Suspect]
     Active Substance: RISPERIDONE
     Indication: PARANOID PERSONALITY DISORDER
     Route: 065

REACTIONS (3)
  - Drug ineffective [Unknown]
  - Psychiatric symptom [Unknown]
  - Frontotemporal dementia [Unknown]
